FAERS Safety Report 7437852-7 (Version None)
Quarter: 2011Q2

REPORT INFORMATION
  Report Type: 
  Country: None (occurrence: None)
  Receive Date: 20110426
  Receipt Date: 20110418
  Transmission Date: 20111010
  Serious: Yes (Death, Hospitalization)
  Sender: FDA-Public Use
  Company Number: A0919424A

PATIENT
  Age: 25 Year
  Sex: Male

DRUGS (4)
  1. MEPRON [Suspect]
     Dosage: 750MG TWICE PER DAY
     Route: 048
     Dates: start: 20110309
  2. KALETRA [Concomitant]
  3. TRUVADA [Concomitant]
  4. AUGMENTIN [Concomitant]

REACTIONS (1)
  - KAPOSI'S SARCOMA [None]
